FAERS Safety Report 10456538 (Version 1)
Quarter: 2014Q3

REPORT INFORMATION
  Report Type: Spontaneous
  Country: DE (occurrence: DE)
  Receive Date: 20140916
  Receipt Date: 20140916
  Transmission Date: 20150326
  Serious: Yes (Other)
  Sender: FDA-Public Use
  Company Number: DE-SA-2014SA124809

PATIENT
  Sex: Male

DRUGS (2)
  1. MIRTAZAPINE. [Interacting]
     Active Substance: MIRTAZAPINE
     Dosage: FORM: FILM COATED TABLET
     Route: 048
  2. MULTAQ [Suspect]
     Active Substance: DRONEDARONE
     Route: 048

REACTIONS (2)
  - Angina pectoris [Not Recovered/Not Resolved]
  - Drug interaction [Unknown]
